FAERS Safety Report 16863233 (Version 1)
Quarter: 2019Q3

REPORT INFORMATION
  Report Type: Spontaneous
  Country: CH (occurrence: CH)
  Receive Date: 20190927
  Receipt Date: 20190927
  Transmission Date: 20191005
  Serious: Yes (Other)
  Sender: FDA-Public Use
  Company Number: CH-PFIZER INC-2019405610

PATIENT

DRUGS (2)
  1. ALDACTONE [Suspect]
     Active Substance: SPIRONOLACTONE
     Indication: CHORIORETINOPATHY
     Dosage: 50 MG, DAILY
  2. INSPRA [Suspect]
     Active Substance: EPLERENONE
     Indication: CHORIORETINOPATHY
     Dosage: 50 MG, DAILY

REACTIONS (6)
  - Gynaecomastia [Unknown]
  - Off label use [Unknown]
  - Hypotension [Unknown]
  - Product use in unapproved indication [Unknown]
  - Dizziness [Unknown]
  - Urinary retention [Unknown]
